FAERS Safety Report 23078201 (Version 3)
Quarter: 2024Q4

REPORT INFORMATION
  Report Type: Spontaneous
  Country: ES (occurrence: ES)
  Receive Date: 20231018
  Receipt Date: 20241224
  Transmission Date: 20250114
  Serious: Yes (Hospitalization, Other)
  Sender: CHATTEM
  Company Number: None

PATIENT
  Age: 70 Year
  Sex: Male

DRUGS (9)
  1. IBUPROFEN [Suspect]
     Active Substance: IBUPROFEN
     Indication: Back pain
     Dosage: 600.0 MG Q8H
     Route: 048
     Dates: start: 20230303, end: 20230316
  2. DICLOFENAC [Suspect]
     Active Substance: DICLOFENAC
     Indication: Back pain
     Dosage: 50.0 MG Q12H
     Route: 048
     Dates: start: 20230216, end: 20230316
  3. LOSARTAN [Suspect]
     Active Substance: LOSARTAN
     Indication: Hypertension
     Dosage: 100.0 MG C/24 H
     Route: 048
     Dates: start: 20210527, end: 20230316
  4. ORFIDAL, 50tablets [Concomitant]
     Indication: Anxiety
     Dosage: 1.0 MG Q24H NOC
     Route: 048
     Dates: start: 20221221
  5. ESCITALOPRAM CINFA 20mg GD FILM-COATED TABLETS, 56tablets [Concomitant]
     Indication: Persistent depressive disorder
     Dosage: 20.0 MG DE
     Route: 048
     Dates: start: 20190531
  6. OMEPRAZOLE CINFA 20mg GD GASTRO-RESISTANT HARD CAPSULES, 56capsules (b [Concomitant]
     Indication: Diverticulum gastric
     Dosage: 20.0 MG BEFORE BREAKFAST
     Route: 048
     Dates: start: 20210618
  7. OMNIC OCAS, 30tablets [Concomitant]
     Indication: Benign prostatic hyperplasia
     Dosage: 0.4MG Q24H
     Route: 048
     Dates: start: 20220526
  8. PARACETAMOL KERN PHARMA 650mg GD TABLETS, 40tablets [Concomitant]
     Indication: Bursitis
     Dosage: 650.0MG B-L-D
     Route: 048
     Dates: start: 20220512
  9. SYMBICORT TURBUHALER 160micrograms/4.5micrograms/INHALATION POWDER FOR [Concomitant]
     Indication: Tobacco abuse
     Dosage: 2.0 PUFFQ12H
     Dates: start: 20220307

REACTIONS (1)
  - Acute kidney injury [Recovered/Resolved]

NARRATIVE: CASE EVENT DATE: 20230316
